FAERS Safety Report 5551701-3 (Version None)
Quarter: 2007Q4

REPORT INFORMATION
  Report Type: 
  Country: None (occurrence: None)
  Receive Date: 20071212
  Receipt Date: 20070601
  Transmission Date: 20080405
  Serious: No
  Sender: FDA-Public Use
  Company Number: US-AMGEN-KDL227205

PATIENT
  Sex: Male
  Weight: 68.1 kg

DRUGS (2)
  1. ENBREL [Suspect]
     Indication: PSORIASIS
     Route: 058
     Dates: start: 20070201
  2. DILANTIN [Concomitant]

REACTIONS (1)
  - OEDEMA PERIPHERAL [None]
